FAERS Safety Report 10098436 (Version 1)
Quarter: 2014Q2

REPORT INFORMATION
  Report Type: Spontaneous
  Country: US (occurrence: US)
  Receive Date: 20140423
  Receipt Date: 20140423
  Transmission Date: 20141212
  Serious: No
  Sender: FDA-Public Use
  Company Number: US-PFIZER INC-2014112619

PATIENT
  Age: 29 Year
  Sex: Male
  Weight: 86.17 kg

DRUGS (2)
  1. ZOLOFT [Suspect]
     Indication: DEPRESSION
     Dosage: 200 MG, DAILY
     Dates: start: 2013, end: 201404
  2. ZOLOFT [Suspect]
     Indication: ANXIETY

REACTIONS (1)
  - Drug withdrawal syndrome [Unknown]
